FAERS Safety Report 6848371-0 (Version None)
Quarter: 2010Q3

REPORT INFORMATION
  Report Type: 
  Country: None (occurrence: None)
  Receive Date: 20100716
  Receipt Date: 20100708
  Transmission Date: 20110219
  Serious: Yes (Death)
  Sender: FDA-Public Use
  Company Number: GB-ROCHE-714552

PATIENT
  Sex: Male

DRUGS (3)
  1. CAPECITABINE [Suspect]
     Indication: PRODUCT USED FOR UNKNOWN INDICATION
     Dosage: ACTUAL DOSE GIVEN: 52500 MG, LAST DOSE RECEIVED PROIR TO SAE ON 30 DECEMBER 2009.
     Route: 065
     Dates: start: 20091020
  2. CISPLATIN [Suspect]
     Indication: PRODUCT USED FOR UNKNOWN INDICATION
     Dosage: ACTUAL DOSE GIVEN: 120 MG, LAST DOSE RECEIVED PRIOR TO SAE ON 30 DECEMBER 2009.
     Route: 065
     Dates: start: 20091030
  3. EPIRUBICIN [Suspect]
     Indication: PRODUCT USED FOR UNKNOWN INDICATION
     Dosage: ACTUAL DOSE: 100 MG, LAST DOSE RECEIVED PRIOR TO SAE ON 30 DECEMBER 2009.
     Route: 065
     Dates: start: 20091020

REACTIONS (1)
  - DEATH [None]
